FAERS Safety Report 5798001-4 (Version None)
Quarter: 2008Q3

REPORT INFORMATION
  Report Type: 
  Country: None (occurrence: None)
  Receive Date: 20080702
  Receipt Date: 20040708
  Transmission Date: 20090109
  Serious: Yes (Hospitalization)
  Sender: FDA-Public Use
  Company Number: B0336446A

PATIENT
  Age: 4 Year
  Sex: Female
  Weight: 15 kg

DRUGS (2)
  1. HALFAN [Suspect]
     Dosage: 150MG SINGLE DOSE
     Route: 048
     Dates: start: 20040609, end: 20040609
  2. ACETAMINOPHEN [Suspect]
     Dosage: 225MG PER DAY
     Route: 048
     Dates: start: 20040609, end: 20040609

REACTIONS (1)
  - HALLUCINATION [None]
